FAERS Safety Report 7492075-0 (Version None)
Quarter: 2011Q2

REPORT INFORMATION
  Report Type: 
  Country: None (occurrence: None)
  Receive Date: 20110511
  Receipt Date: 20110502
  Transmission Date: 20111010
  Serious: Yes (Disabling)
  Sender: FDA-Public Use
  Company Number: 2011SP020112

PATIENT
  Age: 54 Year
  Sex: Female

DRUGS (4)
  1. XANAX [Concomitant]
  2. SAPHRIS [Suspect]
     Indication: BIPOLAR DISORDER
     Dosage: 5 MG;BID;SL
     Route: 060
     Dates: start: 20110411, end: 20110425
  3. ABILIFY [Concomitant]
  4. CYMBALTA [Concomitant]

REACTIONS (2)
  - MYOCLONUS [None]
  - IMPAIRED DRIVING ABILITY [None]
